FAERS Safety Report 24105185 (Version 1)
Quarter: 2024Q3

REPORT INFORMATION
  Report Type: Spontaneous
  Country: FR (occurrence: FR)
  Receive Date: 20240717
  Receipt Date: 20240717
  Transmission Date: 20241017
  Serious: Yes (Other)
  Sender: VERTEX
  Company Number: None

PATIENT
  Age: 2 Year
  Sex: Male
  Weight: 14 kg

DRUGS (6)
  1. ELEXACAFTOR\IVACAFTOR\TEZACAFTOR [Suspect]
     Active Substance: ELEXACAFTOR\IVACAFTOR\TEZACAFTOR
     Indication: Cystic fibrosis
     Dosage: 1 SACHET-(60 MG IVACAFTOR/ 40 MG TEZACAFTOR/ 80 MG ELEXACAFTOR), GRANULES
     Route: 048
     Dates: start: 20240424
  2. KALYDECO [Suspect]
     Active Substance: IVACAFTOR
     Indication: Cystic fibrosis
     Dosage: 1 DOSAGE FORM, QD
     Route: 048
     Dates: start: 20240424, end: 20240529
  3. ZITHROMAX [Concomitant]
     Active Substance: AZITHROMYCIN DIHYDRATE
     Dosage: 3 DOSAGE FORM, QW
     Route: 048
     Dates: start: 202401
  4. CREON [Concomitant]
     Active Substance: PANCRELIPASE AMYLASE\PANCRELIPASE LIPASE\PANCRELIPASE PROTEASE
     Dosage: 140000 INTERNATIONAL UNIT, QD
     Route: 048
  5. UVESTEROL VITAMINE A D E C [Concomitant]
     Route: 048
  6. VITAMIN K [Concomitant]
     Active Substance: PHYTONADIONE
     Dosage: 2 ML, QW
     Route: 048

REACTIONS (3)
  - Aggression [Not Recovered/Not Resolved]
  - Sleep disorder [Not Recovered/Not Resolved]
  - Agitation [Not Recovered/Not Resolved]

NARRATIVE: CASE EVENT DATE: 20240401
